FAERS Safety Report 12702803 (Version 1)
Quarter: 2016Q3

REPORT INFORMATION
  Report Type: Spontaneous
  Country: FI (occurrence: FI)
  Receive Date: 20160831
  Receipt Date: 20160831
  Transmission Date: 20161109
  Serious: Yes (Other)
  Sender: FDA-Public Use
  Company Number: FI-SA-2016SA154276

PATIENT
  Age: 50 Year
  Sex: Male

DRUGS (3)
  1. SOLOSTAR [Concomitant]
     Active Substance: DEVICE
     Indication: LATENT AUTOIMMUNE DIABETES IN ADULTS
     Route: 065
     Dates: start: 2016
  2. TOUJEO [Suspect]
     Active Substance: INSULIN GLARGINE
     Indication: LATENT AUTOIMMUNE DIABETES IN ADULTS
     Dosage: DOSE:22 UNIT(S)
     Route: 065
     Dates: start: 2016
  3. LANTUS [Concomitant]
     Active Substance: INSULIN GLARGINE
     Dosage: DOSE:22 UNIT(S)
     Dates: end: 2016

REACTIONS (2)
  - Seizure [Unknown]
  - Muscle spasms [Unknown]

NARRATIVE: CASE EVENT DATE: 201608
